FAERS Safety Report 7954302-2 (Version None)
Quarter: 2011Q4

REPORT INFORMATION
  Report Type: 
  Country: None (occurrence: None)
  Receive Date: 20111129
  Receipt Date: 20111121
  Transmission Date: 20120403
  Serious: Yes (Hospitalization)
  Sender: FDA-Public Use
  Company Number: 2010SP043248

PATIENT
  Age: 31 Year
  Sex: Female
  Weight: 56.6996 kg

DRUGS (2)
  1. NEXIUM [Concomitant]
  2. NUVARING [Suspect]
     Indication: CONTRACEPTION
     Dates: start: 20040819, end: 20041001

REACTIONS (17)
  - RHINITIS ALLERGIC [None]
  - PNEUMONIA [None]
  - DYSFUNCTIONAL UTERINE BLEEDING [None]
  - IRRITABLE BOWEL SYNDROME [None]
  - CARDIAC MURMUR [None]
  - DEHYDRATION [None]
  - PULMONARY EMBOLISM [None]
  - BLOOD DISORDER [None]
  - ANXIETY [None]
  - GASTROENTERITIS [None]
  - PELVIC PAIN [None]
  - BIPOLAR DISORDER [None]
  - PELVIC INFLAMMATORY DISEASE [None]
  - GASTROOESOPHAGEAL REFLUX DISEASE [None]
  - ABDOMINAL PAIN [None]
  - WEIGHT DECREASED [None]
  - DEPRESSION [None]
